FAERS Safety Report 25941597 (Version 1)
Quarter: 2025Q4

REPORT INFORMATION
  Report Type: Spontaneous
  Country: US (occurrence: None)
  Receive Date: 20251020
  Receipt Date: 20251020
  Transmission Date: 20260118
  Serious: Yes (Hospitalization)
  Sender: FDA-CTU
  Company Number: None

PATIENT
  Age: 41 Year
  Sex: Male
  Weight: 68.04 kg

DRUGS (1)
  1. PANOBINOSTAT [Suspect]
     Active Substance: PANOBINOSTAT
     Indication: Sickle cell disease
     Dosage: OTHER FREQUENCY : OTHER;?
     Route: 048
     Dates: start: 20251008

REACTIONS (4)
  - Arthralgia [None]
  - Chest pain [None]
  - Papule [None]
  - Chest X-ray abnormal [None]

NARRATIVE: CASE EVENT DATE: 20251017
